FAERS Safety Report 21392034 (Version 4)
Quarter: 2023Q2

REPORT INFORMATION
  Report Type: Spontaneous
  Country: US (occurrence: US)
  Receive Date: 20220929
  Receipt Date: 20230410
  Transmission Date: 20230721
  Serious: No
  Sender: FDA-Public Use
  Company Number: US-JNJFOC-20220942441

PATIENT
  Sex: Female
  Weight: 80.812 kg

DRUGS (2)
  1. SIMPONI [Suspect]
     Active Substance: GOLIMUMAB
     Indication: Rheumatoid arthritis
     Route: 058
  2. SIMPONI [Suspect]
     Active Substance: GOLIMUMAB
     Indication: Systemic lupus erythematosus

REACTIONS (5)
  - Product packaging quantity issue [Unknown]
  - Product dose omission issue [Unknown]
  - Pain [Unknown]
  - Device leakage [Unknown]
  - Product sterility issue [Unknown]
